FAERS Safety Report 13539387 (Version 2)
Quarter: 2017Q2

REPORT INFORMATION
  Report Type: Spontaneous
  Country: US (occurrence: US)
  Receive Date: 20170512
  Receipt Date: 20170630
  Transmission Date: 20170830
  Serious: No
  Sender: FDA-Public Use
  Company Number: US-PFIZER INC-2017203908

PATIENT
  Age: 81 Year
  Sex: Male

DRUGS (1)
  1. LYRICA [Suspect]
     Active Substance: PREGABALIN
     Indication: ARTHRALGIA
     Dosage: UNK (A 21 Z PAK)

REACTIONS (5)
  - Pain [Unknown]
  - Arthropathy [Unknown]
  - Product use in unapproved indication [Unknown]
  - Vision blurred [Unknown]
  - Insomnia [Unknown]
